FAERS Safety Report 20853719 (Version 1)
Quarter: 2022Q2

REPORT INFORMATION
  Report Type: Spontaneous
  Country: US (occurrence: None)
  Receive Date: 20220519
  Receipt Date: 20220519
  Transmission Date: 20220721
  Serious: Yes (Hospitalization)
  Sender: FDA-Public Use
  Company Number: None

PATIENT
  Age: 67 Year
  Sex: Female

DRUGS (1)
  1. SUNITINIB [Suspect]
     Active Substance: SUNITINIB
     Dosage: OTHER QUANTITY : 12.5MG DALY FOR 7D;?FREQUENCY : DAILY;?
     Route: 048
     Dates: start: 202108

REACTIONS (8)
  - Upper respiratory tract infection [None]
  - Drug interaction [None]
  - Abdominal pain [None]
  - Abdominal hernia [None]
  - Off label use [None]
  - Decreased appetite [None]
  - Nausea [None]
  - Neoplasm progression [None]

NARRATIVE: CASE EVENT DATE: 20220505
